FAERS Safety Report 6657005-X (Version None)
Quarter: 2010Q1

REPORT INFORMATION
  Report Type: 
  Country: None (occurrence: None)
  Receive Date: 20100329
  Receipt Date: 20100329
  Transmission Date: 20100710
  Serious: No
  Sender: FDA-Public Use
  Company Number: None

PATIENT
  Age: 50 Year
  Sex: Male

DRUGS (12)
  1. SIMVASTATIN [Suspect]
     Dates: start: 20080514, end: 20080707
  2. CELLCEPT [Concomitant]
  3. CYCLOSPORINE [Concomitant]
  4. LASIX [Concomitant]
  5. ZANTAC [Concomitant]
  6. ASPIRIN [Concomitant]
  7. PREDNISONE TAB [Concomitant]
  8. FOLIC ACID [Concomitant]
  9. IRON [Concomitant]
  10. METOPROLOL [Concomitant]
  11. INSULIN [Concomitant]
  12. OXYCODONE [Concomitant]

REACTIONS (9)
  - HAEMODIALYSIS [None]
  - HEPATITIS [None]
  - HEPATOTOXICITY [None]
  - HYPERTENSIVE CRISIS [None]
  - LIVER INJURY [None]
  - RENAL FAILURE ACUTE [None]
  - RENAL TRANSPLANT [None]
  - RHABDOMYOLYSIS [None]
  - TREATMENT NONCOMPLIANCE [None]
